FAERS Safety Report 9263429 (Version 1)
Quarter: 2013Q2

REPORT INFORMATION
  Report Type: Spontaneous
  Country: US (occurrence: US)
  Receive Date: 20130430
  Receipt Date: 20130430
  Transmission Date: 20140414
  Serious: No
  Sender: FDA-Public Use
  Company Number: US-ABBOTT-13P-163-1059561-00

PATIENT
  Age: 83 Year
  Sex: Male
  Weight: 77.18 kg

DRUGS (3)
  1. CREON [Suspect]
     Indication: PANCREATITIS CHRONIC
     Dosage: 1 CAPSULE WITH EACH MEAL
     Dates: start: 201209
  2. PANCREAS MEDICATION [Concomitant]
     Indication: PANCREATITIS
  3. CHOLESTEROL MEDICATION [Concomitant]
     Indication: BLOOD CHOLESTEROL INCREASED

REACTIONS (1)
  - Abdominal discomfort [Not Recovered/Not Resolved]
